FAERS Safety Report 6243917-8 (Version None)
Quarter: 2009Q2

REPORT INFORMATION
  Report Type: 
  Country: None (occurrence: None)
  Receive Date: 20090623
  Receipt Date: 20090609
  Transmission Date: 20091009
  Serious: Yes (Hospitalization)
  Sender: FDA-Public Use
  Company Number: 236103J08USA

PATIENT
  Age: 30 Year
  Sex: Female
  Weight: 58 kg

DRUGS (4)
  1. REBIF [Suspect]
     Indication: MULTIPLE SCLEROSIS
     Dosage: 44 NOT REPORTED, 3 IN 1 WEEKS,
     Dates: start: 20080101
  2. SOLU-MEDROL [Concomitant]
  3. ADDERALL XR 10 [Concomitant]
  4. CYMBALTA [Concomitant]

REACTIONS (1)
  - DRUG TOXICITY [None]
